FAERS Safety Report 12480720 (Version 2)
Quarter: 2016Q2

REPORT INFORMATION
  Report Type: Spontaneous
  Country: US (occurrence: US)
  Receive Date: 20160620
  Receipt Date: 20160620
  Transmission Date: 20160815
  Serious: Yes (Death, Other)
  Sender: FDA-Public Use
  Company Number: US-ALEMBIC PHARMACUETICALS LIMITED-2016SCAL000479

PATIENT

DRUGS (1)
  1. CELECOXIB. [Suspect]
     Active Substance: CELECOXIB
     Indication: PRODUCT USED FOR UNKNOWN INDICATION
     Dosage: UNK

REACTIONS (8)
  - Neoplasm [Fatal]
  - Cardiac death [Fatal]
  - Respiratory disorder [Fatal]
  - Gastrointestinal haemorrhage [Unknown]
  - Gastritis [Unknown]
  - Rectal haemorrhage [Unknown]
  - Iron deficiency anaemia [Unknown]
  - Anaemia [Unknown]
